FAERS Safety Report 19109766 (Version 1)
Quarter: 2021Q2

REPORT INFORMATION
  Report Type: Report from Study
  Country: US (occurrence: US)
  Receive Date: 20210409
  Receipt Date: 20210409
  Transmission Date: 20210717
  Serious: Yes (Other)
  Sender: FDA-Public Use
  Company Number: US-ROCHE-2801292

PATIENT
  Age: 58 Year
  Sex: Female
  Weight: 73.09 kg

DRUGS (26)
  1. VITAMIN D3 [Concomitant]
     Active Substance: CHOLECALCIFEROL
     Dates: start: 2015
  2. ALEVE [Concomitant]
     Active Substance: NAPROXEN SODIUM
     Indication: ARTHRALGIA
     Dates: start: 202007
  3. CORTISONE [Concomitant]
     Active Substance: CORTISONE
     Indication: RASH
     Dates: start: 20201126, end: 20201128
  4. PRILOSEC [Concomitant]
     Active Substance: OMEPRAZOLE MAGNESIUM
     Indication: GASTROOESOPHAGEAL REFLUX DISEASE
     Dates: start: 202002
  5. VALTREX [Concomitant]
     Active Substance: VALACYCLOVIR HYDROCHLORIDE
     Indication: ORAL HERPES
     Dates: start: 1992
  6. VALIUM [Concomitant]
     Active Substance: DIAZEPAM
     Indication: ANXIETY
     Dates: start: 202002
  7. MAGNESIUM [Concomitant]
     Active Substance: MAGNESIUM
     Indication: HYPOMAGNESAEMIA
     Route: 042
     Dates: start: 20201222, end: 20201222
  8. ATIVAN [Concomitant]
     Active Substance: LORAZEPAM
  9. ZOLOFT [Concomitant]
     Active Substance: SERTRALINE HYDROCHLORIDE
     Indication: DEPRESSION
     Dates: start: 2015
  10. COLACE [Concomitant]
     Active Substance: DOCUSATE SODIUM
     Indication: CONSTIPATION
     Dosage: 1?2 TABS
     Dates: start: 202004
  11. IMODIUM [Concomitant]
     Active Substance: LOPERAMIDE HYDROCHLORIDE
     Dosage: TAKE 2 CAPSULES TO START
  12. GABAPENTIN. [Concomitant]
     Active Substance: GABAPENTIN
     Dates: start: 20200525, end: 20201011
  13. MAGNESIUM [Concomitant]
     Active Substance: MAGNESIUM
     Route: 048
     Dates: start: 20201222
  14. ATEZOLIZUMAB. [Suspect]
     Active Substance: ATEZOLIZUMAB
     Indication: TRIPLE NEGATIVE BREAST CANCER
     Route: 041
     Dates: start: 20201110, end: 20201222
  15. TUMS [Concomitant]
     Active Substance: CALCIUM CARBONATE
     Indication: HYPOCALCAEMIA
     Dosage: 2?4 TABS
     Dates: start: 202002
  16. AQUAFOR [Concomitant]
     Indication: RASH
     Dates: start: 20201121, end: 20201124
  17. CLARITIN [Concomitant]
     Active Substance: LORATADINE
     Indication: SEASONAL ALLERGY
     Dates: start: 2000
  18. TYLENOL [Concomitant]
     Active Substance: ACETAMINOPHEN
     Indication: HEADACHE
     Dates: start: 1974
  19. TRIAMCINOLONE [Concomitant]
     Active Substance: TRIAMCINOLONE
     Indication: RASH
     Dates: start: 20201208, end: 20210119
  20. CARBOPLATIN. [Suspect]
     Active Substance: CARBOPLATIN
     Indication: TRIPLE NEGATIVE BREAST CANCER
     Route: 042
     Dates: start: 20200610, end: 20200930
  21. VALTREX [Concomitant]
     Active Substance: VALACYCLOVIR HYDROCHLORIDE
     Indication: ORAL HERPES
     Dates: start: 2014
  22. NORCO [Concomitant]
     Active Substance: ACETAMINOPHEN\HYDROCODONE BITARTRATE
     Indication: PAIN
     Dosage: 5/325MG
     Dates: start: 202002
  23. TRAMADOL. [Concomitant]
     Active Substance: TRAMADOL
     Indication: PAIN
     Dates: start: 202002
  24. TRULANCE [Concomitant]
     Active Substance: PLECANATIDE
     Indication: CONSTIPATION
     Dates: start: 20200728
  25. BENADRYL [Concomitant]
     Active Substance: DIPHENHYDRAMINE HYDROCHLORIDE
     Indication: RASH
     Dates: start: 20201128
  26. HYDROCORTISONE. [Concomitant]
     Active Substance: HYDROCORTISONE
     Indication: RASH
     Dates: start: 20201208

REACTIONS (1)
  - Optic neuritis [Recovering/Resolving]

NARRATIVE: CASE EVENT DATE: 20210302
